FAERS Safety Report 22251281 (Version 1)
Quarter: 2023Q2

REPORT INFORMATION
  Report Type: Spontaneous
  Country: US (occurrence: US)
  Receive Date: 20230425
  Receipt Date: 20230425
  Transmission Date: 20230722
  Serious: Yes (Hospitalization, Other)
  Sender: FDA-Public Use
  Company Number: US-SPECGX-T202301048

PATIENT
  Age: 45 Year
  Sex: Female

DRUGS (2)
  1. METHADONE [Suspect]
     Active Substance: METHADONE HYDROCHLORIDE
     Indication: Drug use disorder
     Dosage: UNK
     Route: 065
  2. HYDROMORPHONE [Suspect]
     Active Substance: HYDROMORPHONE
     Indication: Pain
     Dosage: UNK
     Route: 065

REACTIONS (10)
  - Cholangiocarcinoma [Unknown]
  - Syncope [Unknown]
  - Abdominal pain [Unknown]
  - Cancer pain [Unknown]
  - Electrocardiogram QT prolonged [Unknown]
  - Arrhythmia [Unknown]
  - Allodynia [Recovered/Resolved]
  - Hyperaesthesia [Unknown]
  - Anxiety [Recovering/Resolving]
  - Drug ineffective [Unknown]
